FAERS Safety Report 14526378 (Version 1)
Quarter: 2018Q1

REPORT INFORMATION
  Report Type: Spontaneous
  Country: US (occurrence: US)
  Receive Date: 20180212
  Receipt Date: 20180212
  Transmission Date: 20180509
  Serious: No
  Sender: FDA-Public Use
  Company Number: None

PATIENT
  Age: 49 Year
  Sex: Female

DRUGS (1)
  1. MEKINIST [Suspect]
     Active Substance: TRAMETINIB DIMETHYL SULFOXIDE
     Route: 048

REACTIONS (3)
  - Joint swelling [None]
  - Neoplasm [None]
  - Femur fracture [None]

NARRATIVE: CASE EVENT DATE: 20180112
